FAERS Safety Report 18821268 (Version 1)
Quarter: 2021Q1

REPORT INFORMATION
  Report Type: Spontaneous
  Country: US (occurrence: US)
  Receive Date: 20210201
  Receipt Date: 20210201
  Transmission Date: 20210419
  Serious: Yes (Hospitalization)
  Sender: FDA-Public Use
  Company Number: None

PATIENT
  Age: 67 Year
  Sex: Male
  Weight: 86 kg

DRUGS (1)
  1. IPILIMUMAB (IPILIMUMAB 5MG/ML INJ, SOLN, 40ML) [Suspect]
     Active Substance: IPILIMUMAB
     Indication: METASTATIC MALIGNANT MELANOMA
     Route: 042
     Dates: start: 20200602, end: 20200821

REACTIONS (15)
  - Headache [None]
  - Hypokalaemia [None]
  - Tachycardia [None]
  - Leukocytosis [None]
  - Abdominal pain lower [None]
  - Diabetic ketoacidosis [None]
  - Dizziness [None]
  - Visual impairment [None]
  - Hypotension [None]
  - Fall [None]
  - Muscular weakness [None]
  - Diarrhoea [None]
  - Head injury [None]
  - Acute kidney injury [None]
  - Hypomagnesaemia [None]

NARRATIVE: CASE EVENT DATE: 20200915
